FAERS Safety Report 17947452 (Version 1)
Quarter: 2020Q2

REPORT INFORMATION
  Report Type: Spontaneous
  Country: US (occurrence: US)
  Receive Date: 20200625
  Receipt Date: 20200625
  Transmission Date: 20200714
  Serious: Yes (Death)
  Sender: FDA-Public Use
  Company Number: None

PATIENT
  Sex: Male

DRUGS (11)
  1. ACETAMIN [Concomitant]
     Active Substance: ACETAMINOPHEN
  2. ATORVASTATIN [Concomitant]
     Active Substance: ATORVASTATIN
  3. DIGOX [Concomitant]
     Active Substance: DIGOXIN
  4. ESCITALOPRAM [Concomitant]
     Active Substance: ESCITALOPRAM OXALATE
  5. FORTEO [Concomitant]
     Active Substance: TERIPARATIDE
  6. DIGOXIN. [Concomitant]
     Active Substance: DIGOXIN
  7. FUROSEMIDE. [Concomitant]
     Active Substance: FUROSEMIDE
  8. MORPHINE [Concomitant]
     Active Substance: MORPHINE
  9. CAPECITABINE. [Suspect]
     Active Substance: CAPECITABINE
     Indication: PANCREATIC CARCINOMA
     Route: 048
     Dates: start: 20200312
  10. METOPROLOL TARTRATE. [Concomitant]
     Active Substance: METOPROLOL TARTRATE
  11. PRADAXA [Concomitant]
     Active Substance: DABIGATRAN ETEXILATE MESYLATE

REACTIONS (1)
  - Death [None]
